FAERS Safety Report 12565085 (Version 4)
Quarter: 2016Q4

REPORT INFORMATION
  Report Type: Spontaneous
  Country: US (occurrence: US)
  Receive Date: 20160718
  Receipt Date: 20161221
  Transmission Date: 20170207
  Serious: Yes (Hospitalization)
  Sender: FDA-Public Use
  Company Number: US-ASTELLAS-2016US017606

PATIENT
  Sex: Male

DRUGS (3)
  1. IRON [Concomitant]
     Active Substance: IRON
     Indication: PRODUCT USED FOR UNKNOWN INDICATION
     Dosage: UNK UNK, UNKNOWN FREQ.
     Route: 065
  2. XTANDI [Suspect]
     Active Substance: ENZALUTAMIDE
     Indication: PROSTATE CANCER
     Route: 048
     Dates: start: 20160505
  3. XTANDI [Suspect]
     Active Substance: ENZALUTAMIDE
     Route: 048
     Dates: start: 201608

REACTIONS (9)
  - Abdominal distension [Unknown]
  - Infection [Unknown]
  - Eating disorder [Unknown]
  - Anal incontinence [Unknown]
  - Constipation [Unknown]
  - Decreased appetite [Unknown]
  - Flatulence [Unknown]
  - Cardiac failure congestive [Unknown]
  - Fall [Unknown]
